FAERS Safety Report 8326439-X (Version None)
Quarter: 2012Q2

REPORT INFORMATION
  Report Type: 
  Country: None (occurrence: None)
  Receive Date: 20120501
  Receipt Date: 20120423
  Transmission Date: 20120825
  Serious: Yes (Other)
  Sender: FDA-Public Use
  Company Number: US-ROXANE LABORATORIES, INC.-2012-RO-01108RO

PATIENT
  Age: 27 Year
  Sex: Male

DRUGS (3)
  1. PAROXETINE [Suspect]
     Dosage: 30 MG
  2. ZOLPIDEM [Suspect]
     Indication: INSOMNIA
     Dosage: 10 MG
  3. RISPERIDONE [Suspect]
     Dosage: 3.5 MG

REACTIONS (4)
  - VISION BLURRED [None]
  - COORDINATION ABNORMAL [None]
  - MANIA [None]
  - FEELING DRUNK [None]
